FAERS Safety Report 10074941 (Version 2)
Quarter: 2014Q2

REPORT INFORMATION
  Report Type: Report from Study
  Country: GB (occurrence: GB)
  Receive Date: 20140414
  Receipt Date: 20140619
  Transmission Date: 20141212
  Serious: Yes (Other)
  Sender: FDA-Public Use
  Company Number: GB-ROCHE-1377515

PATIENT
  Age: 32 Year
  Sex: Female
  Weight: 51.7 kg

DRUGS (8)
  1. TOCILIZUMAB [Suspect]
     Indication: RHEUMATOID ARTHRITIS
     Dosage: STARTING DOSE - 8 MG/KG ?LAST DOSE PRIOR TO SAE 05/MAR/2014
     Route: 042
     Dates: start: 20131114, end: 20131114
  2. TOCILIZUMAB [Suspect]
     Dosage: LAST DOSE PRIOR TO SAE 05/MAR/2014
     Route: 042
     Dates: start: 20131211, end: 20131211
  3. TOCILIZUMAB [Suspect]
     Dosage: LAST DOSE PRIOR TO SAE 05/MAR/2014
     Route: 042
     Dates: start: 20140108, end: 20140108
  4. TOCILIZUMAB [Suspect]
     Dosage: LAST DOSE PRIOR TO SAE 05/MAR/2014
     Route: 042
     Dates: start: 20140206, end: 20140206
  5. TOCILIZUMAB [Suspect]
     Dosage: LAST DOSE PRIOR TO SAE 05/MAR/2014?TEMPORARILY INTERRUPTED ON 02/APR/2014
     Route: 042
     Dates: start: 20140305, end: 20140402
  6. METHOTREXATE [Concomitant]
     Indication: RHEUMATOID ARTHRITIS
     Route: 048
     Dates: start: 20131022
  7. PARACETAMOL [Concomitant]
     Route: 065
     Dates: start: 201305
  8. NAPROXEN [Concomitant]
     Route: 048

REACTIONS (2)
  - Tooth infection [Recovered/Resolved]
  - Tooth impacted [Recovered/Resolved]
